FAERS Safety Report 12737590 (Version 4)
Quarter: 2016Q4

REPORT INFORMATION
  Report Type: Spontaneous
  Country: BR (occurrence: BR)
  Receive Date: 20160913
  Receipt Date: 20161010
  Transmission Date: 20170207
  Serious: Yes (Death, Hospitalization, Other)
  Sender: FDA-Public Use
  Company Number: BR-PFIZER INC-2016418787

PATIENT
  Age: 76 Year
  Sex: Male

DRUGS (11)
  1. TRAMAL [Concomitant]
     Active Substance: TRAMADOL
     Indication: ANALGESIC THERAPY
     Dosage: 100 MG, 3X/DAY
     Dates: start: 20160817
  2. HIXIZINE [Concomitant]
     Active Substance: HYDROXYZINE HYDROCHLORIDE
     Indication: ANTIALLERGIC THERAPY
     Dosage: 25 MG, 3X/DAY
     Dates: start: 20160817
  3. ADRIBLASTINA [Suspect]
     Active Substance: DOXORUBICIN HYDROCHLORIDE
     Indication: HEPATOCELLULAR CARCINOMA
     Dosage: UNK
     Route: 013
     Dates: start: 20160817, end: 20160817
  4. NATRILIX /00340101/ [Concomitant]
     Active Substance: INDAPAMIDE
     Indication: DIURETIC THERAPY
     Dosage: 1.5 MG, HALF TABLET DAILY
     Dates: start: 20160817
  5. CIPROFLOXACIN. [Concomitant]
     Active Substance: CIPROFLOXACIN
     Indication: ANTIBIOTIC PROPHYLAXIS
     Dosage: 400 MG, 2X/DAY (EVERY 12 HOURS)
     Dates: start: 20160817
  6. SUPERAN /00690802/ [Concomitant]
     Indication: ANTIEMETIC SUPPORTIVE CARE
     Dosage: 50 MG, 3X/DAY
     Dates: start: 20160817
  7. FLAGYL [Concomitant]
     Active Substance: METRONIDAZOLE\METRONIDAZOLE HYDROCHLORIDE
     Indication: ANTIBIOTIC PROPHYLAXIS
     Dosage: 500 MG, 3X/DAY (EVERY 8 HOURS)
     Dates: start: 20160817
  8. BUSCOPAN COMPOSTO [Concomitant]
     Indication: ANALGESIC THERAPY
     Dosage: 1 DF, 3X/DAY (1 AMPULE 3X/DAY)
     Dates: start: 20160817
  9. ROXFLAN [Concomitant]
     Active Substance: AMLODIPINE BESYLATE
     Indication: HYPERTENSION
     Dosage: 5 MG, 1X/DAY
     Dates: start: 20160817
  10. LEXOTAN [Concomitant]
     Active Substance: BROMAZEPAM
     Dosage: 3 MG, 1X/DAY
     Dates: start: 20160817
  11. SORO FISIOLOGICO B.BRAUN [Concomitant]
     Dosage: UNK
     Dates: start: 20160817

REACTIONS (3)
  - Portal vein thrombosis [Unknown]
  - Acute respiratory distress syndrome [Fatal]
  - Encephalopathy [Unknown]

NARRATIVE: CASE EVENT DATE: 201608
